FAERS Safety Report 7930450-8 (Version None)
Quarter: 2011Q4

REPORT INFORMATION
  Report Type: 
  Country: None (occurrence: None)
  Receive Date: 20111117
  Receipt Date: 20111117
  Transmission Date: 20120403
  Serious: Yes (Hospitalization)
  Sender: FDA-Public Use
  Company Number: None

PATIENT
  Age: 71 Year
  Sex: Male
  Weight: 93.8946 kg

DRUGS (1)
  1. FELODIPINE [Suspect]
     Indication: HYPERTENSION
     Dosage: 10 MG SA ONE TABLET DLY
     Dates: start: 20110830

REACTIONS (8)
  - BREAST SWELLING [None]
  - LIVER FUNCTION TEST ABNORMAL [None]
  - MYOCARDIAL INFARCTION [None]
  - CONSTIPATION [None]
  - NAUSEA [None]
  - BREAST INFECTION [None]
  - RESPIRATORY TRACT INFECTION [None]
  - RASH [None]
